FAERS Safety Report 9753846 (Version 2)
Quarter: 2015Q3

REPORT INFORMATION
  Report Type: Spontaneous
  Country: US (occurrence: US)
  Receive Date: 20131213
  Receipt Date: 20150805
  Transmission Date: 20151125
  Serious: No
  Sender: FDA-Public Use
  Company Number: US-GILEAD-2010-0027660

PATIENT
  Age: 44 Year
  Sex: Female
  Weight: 113.4 kg

DRUGS (14)
  1. CALTRATE [Concomitant]
     Active Substance: CALCIUM CARBONATE
  2. LETAIRIS [Suspect]
     Active Substance: AMBRISENTAN
     Indication: PULMONARY ARTERIAL HYPERTENSION
     Route: 048
     Dates: start: 20090220
  3. LIPITOR [Concomitant]
     Active Substance: ATORVASTATIN CALCIUM
  4. DIGOXIN. [Concomitant]
     Active Substance: DIGOXIN
  5. METHOTREXATE [Concomitant]
     Active Substance: METHOTREXATE
  6. FAMOTIDINE. [Concomitant]
     Active Substance: FAMOTIDINE
  7. NIASPAN [Concomitant]
     Active Substance: NIACIN
  8. METOCLOPRAMIDE. [Concomitant]
     Active Substance: METOCLOPRAMIDE
  9. FOLIC ACID. [Concomitant]
     Active Substance: FOLIC ACID
  10. VITAMIN D [Concomitant]
     Active Substance: CHOLECALCIFEROL
  11. ADVAIR HFA [Concomitant]
     Active Substance: FLUTICASONE PROPIONATE\SALMETEROL XINAFOATE
  12. WARFARIN [Concomitant]
     Active Substance: WARFARIN
  13. PANTOPRAZOLE [Concomitant]
     Active Substance: PANTOPRAZOLE SODIUM
  14. PENTOXIFYLLINE. [Concomitant]
     Active Substance: PENTOXIFYLLINE

REACTIONS (1)
  - Vomiting [Unknown]
